FAERS Safety Report 5845274-5 (Version None)
Quarter: 2008Q3

REPORT INFORMATION
  Report Type: 
  Country: None (occurrence: None)
  Receive Date: 20080814
  Receipt Date: 20080804
  Transmission Date: 20090109
  Serious: Yes (Hospitalization, Other)
  Sender: FDA-Public Use
  Company Number: FR-ABBOTT-08P-056-0468601-00

PATIENT
  Sex: Female
  Weight: 105 kg

DRUGS (7)
  1. HUMIRA [Suspect]
     Indication: RHEUMATOID ARTHRITIS
     Route: 058
     Dates: start: 20040514, end: 20060601
  2. HUMIRA [Suspect]
     Dates: start: 20061004
  3. ESOMEPRAZOLE MAGNESIUM [Concomitant]
     Indication: PROPHYLAXIS AGAINST GASTROINTESTINAL ULCER
     Dates: start: 20010101
  4. ENJOTRLON [Concomitant]
     Indication: VENOUS INSUFFICIENCY
     Dates: start: 20030401
  5. TRAMADOL HCL [Concomitant]
     Indication: RHEUMATOID ARTHRITIS
     Dates: start: 20040101
  6. TRAMADOL HCL [Concomitant]
     Indication: PAIN
  7. PREDNISONE TAB [Concomitant]
     Indication: RHEUMATOID ARTHRITIS
     Dates: start: 20041001

REACTIONS (2)
  - INTESTINAL OBSTRUCTION [None]
  - PERITONITIS [None]
